FAERS Safety Report 17238363 (Version 1)
Quarter: 2019Q4

REPORT INFORMATION
  Report Type: Spontaneous
  Country: US (occurrence: US)
  Receive Date: 20191211
  Receipt Date: 20191211
  Transmission Date: 20200122
  Serious: Yes (Hospitalization)
  Sender: FDA-Public Use
  Company Number: None

PATIENT
  Age: 36 Year

DRUGS (1)
  1. OLD SPICE CLASSIC ORIGINAL SCENT [Suspect]
     Active Substance: ALUMINUM ZIRCONIUM TRICHLOROHYDREX GLY
     Route: 061

REACTIONS (6)
  - Application site burn [None]
  - Axillary pain [None]
  - Skin burning sensation [None]
  - Staphylococcal infection [None]
  - Pruritus [None]
  - Scar [None]
